FAERS Safety Report 9947927 (Version 1)
Quarter: 2014Q1

REPORT INFORMATION
  Report Type: Spontaneous
  Country: US (occurrence: None)
  Receive Date: 20140122
  Receipt Date: 20140122
  Transmission Date: 20141002
  Serious: Yes (Other)
  Sender: FDA-Public Use
  Company Number: AP356-00175-SPO-US

PATIENT
  Age: 57 Year
  Sex: Female
  Weight: 109 kg

DRUGS (8)
  1. BELVIQ (LORCASERIN HYDROCHLORIDE) [Suspect]
     Indication: OBESITY
     Dosage: 20 MG , 2  IN 1 D, ORAL   THERAPY DATES 27/AUG/2013 - 2013 ?
     Route: 048
     Dates: start: 20130827, end: 2013
  2. ATORVASTATIN (ATORVASTATIN) [Concomitant]
  3. CLIMARA PATCH (ESTRADIOL) [Concomitant]
  4. AMLODIPINE (AMLODIPINE) [Concomitant]
  5. VITAMIN D (ERGOCALCIFEROL) [Concomitant]
  6. MULTIVITAMIN (VIGRAN) (ERGOCALCIFEOL, ASCORBIC ACID, PYRIDOXINE HYDROCHLORIDE, THIAMINE HYDROCHLORIDE, RETINOL, RIBOFLAVIN, NICOTINAMIDE, CALCIUM PANTHOTHENATE) [Concomitant]
  7. OMEGA 3 (LIPITAC) [Concomitant]
  8. VITAMIN B12 (CYANOCOBALAMIN) [Concomitant]

REACTIONS (2)
  - Fatigue [None]
  - Somnolence [None]
